FAERS Safety Report 10469119 (Version 2)
Quarter: 2014Q3

REPORT INFORMATION
  Report Type: Spontaneous
  Country: TW (occurrence: TW)
  Receive Date: 20140923
  Receipt Date: 20140930
  Transmission Date: 20150326
  Serious: Yes (Death)
  Sender: FDA-Public Use
  Company Number: TW-ROCHE-1465007

PATIENT
  Sex: Male

DRUGS (1)
  1. ZELBORAF [Suspect]
     Active Substance: VEMURAFENIB
     Indication: METASTATIC MALIGNANT MELANOMA
     Route: 048
     Dates: start: 20140211, end: 20140914

REACTIONS (1)
  - Metastasis [Fatal]

NARRATIVE: CASE EVENT DATE: 20140914
